FAERS Safety Report 4563828-3 (Version None)
Quarter: 2005Q1

REPORT INFORMATION
  Report Type: 
  Country: None (occurrence: None)
  Receive Date: 20050128
  Receipt Date: 20041021
  Transmission Date: 20050727
  Serious: Yes (Hospitalization)
  Sender: FDA-Public Use
  Company Number: PHHO2004US15080

PATIENT
  Age: 43 Year
  Sex: Female

DRUGS (1)
  1. NEORAL [Suspect]
     Indication: RENAL TRANSPLANT
     Dosage: 450 MG, BID
     Route: 048
     Dates: start: 20040915

REACTIONS (7)
  - BLOOD CREATININE INCREASED [None]
  - HAEMORRHAGE [None]
  - KIDNEY TRANSPLANT REJECTION [None]
  - NEPHRECTOMY [None]
  - POST PROCEDURAL HAEMORRHAGE [None]
  - RENAL DISORDER [None]
  - URINE OUTPUT DECREASED [None]
